FAERS Safety Report 4972134-4 (Version None)
Quarter: 2006Q2

REPORT INFORMATION
  Report Type: 
  Country: None (occurrence: None)
  Receive Date: 20060413
  Receipt Date: 20060214
  Transmission Date: 20061013
  Serious: Yes (Life-Threatening, Hospitalization)
  Sender: FDA-Public Use
  Company Number: DEWYE391014FEB06

PATIENT
  Sex: Female
  Weight: 54 kg

DRUGS (2)
  1. ENBREL [Suspect]
     Indication: POLYARTHRITIS
     Route: 058
     Dates: start: 20031201, end: 20051201
  2. ENBREL [Suspect]
     Route: 058
     Dates: start: 20051201, end: 20051201

REACTIONS (1)
  - ATRIOVENTRICULAR BLOCK COMPLETE [None]
